FAERS Safety Report 8338630-7 (Version None)
Quarter: 2012Q2

REPORT INFORMATION
  Report Type: 
  Country: None (occurrence: None)
  Receive Date: 20120504
  Receipt Date: 20120427
  Transmission Date: 20120825
  Serious: Yes (Other)
  Sender: FDA-Public Use
  Company Number: US-TEVA-332882USA

PATIENT
  Sex: Female

DRUGS (1)
  1. CLARAVIS [Suspect]
     Dosage: 40 MILLIGRAM;
     Route: 048
     Dates: start: 20110927, end: 20120310

REACTIONS (4)
  - ABORTION INDUCED [None]
  - TREATMENT NONCOMPLIANCE [None]
  - MATERNAL EXPOSURE DURING PREGNANCY [None]
  - UNINTENDED PREGNANCY [None]
